FAERS Safety Report 15632481 (Version 1)
Quarter: 2018Q4

REPORT INFORMATION
  Report Type: Spontaneous
  Country: US (occurrence: US)
  Receive Date: 20181119
  Receipt Date: 20181119
  Transmission Date: 20190205
  Serious: Yes (Other)
  Sender: FDA-Public Use
  Company Number: None

PATIENT
  Age: 8 Year
  Sex: Female
  Weight: 24.9 kg

DRUGS (2)
  1. TRIPTODUR [Suspect]
     Active Substance: TRIPTORELIN
     Indication: PRECOCIOUS PUBERTY
     Dosage: ?          OTHER FREQUENCY:ONCE;?
     Route: 030
     Dates: start: 20181101, end: 20181101
  2. TRIPTODUR [Suspect]
     Active Substance: TRIPTORELIN
     Indication: PUBERTY
     Dosage: ?          OTHER FREQUENCY:ONCE;?
     Route: 030
     Dates: start: 20181101, end: 20181101

REACTIONS (6)
  - Hypoaesthesia [None]
  - Emotional distress [None]
  - Anxiety [None]
  - Paraesthesia [None]
  - Dystonia [None]
  - Hyperventilation [None]

NARRATIVE: CASE EVENT DATE: 20181101
